FAERS Safety Report 4633022-6 (Version None)
Quarter: 2005Q2

REPORT INFORMATION
  Report Type: 
  Country: None (occurrence: None)
  Receive Date: 20050412
  Receipt Date: 20050331
  Transmission Date: 20051028
  Serious: Yes (Other)
  Sender: FDA-Public Use
  Company Number: US-GLAXOSMITHKLINE-A0552055A

PATIENT
  Age: 64 Year
  Sex: Male

DRUGS (2)
  1. TUMS SMOOTH DISSOLVE TABLETS, PEPPERMINT [Suspect]
     Indication: DRUG USE FOR UNKNOWN INDICATION
     Route: 048
     Dates: start: 20050301
  2. STOOL SOFTENER [Concomitant]
     Indication: DRUG USE FOR UNKNOWN INDICATION

REACTIONS (4)
  - CONSTIPATION [None]
  - FAECES HARD [None]
  - GASTROINTESTINAL INJURY [None]
  - RECTAL HAEMORRHAGE [None]
